FAERS Safety Report 18361070 (Version 1)
Quarter: 2020Q4

REPORT INFORMATION
  Report Type: Spontaneous
  Country: US (occurrence: US)
  Receive Date: 20201008
  Receipt Date: 20201008
  Transmission Date: 20210114
  Serious: Yes (Hospitalization, Other)
  Sender: FDA-Public Use
  Company Number: US-BRISTOL-MYERS SQUIBB COMPANY-BMS-2020-081512

PATIENT
  Age: 59 Year
  Sex: Female

DRUGS (1)
  1. ELIQUIS [Suspect]
     Active Substance: APIXABAN
     Indication: STENT PLACEMENT
     Dosage: 5 MILLIGRAM, BID
     Route: 048

REACTIONS (5)
  - Pulmonary haemorrhage [Unknown]
  - Coma [Unknown]
  - Epistaxis [Unknown]
  - Intentional product use issue [Unknown]
  - Renal disorder [Unknown]

NARRATIVE: CASE EVENT DATE: 20200908
